FAERS Safety Report 19970465 (Version 1)
Quarter: 2021Q4

REPORT INFORMATION
  Report Type: Spontaneous
  Country: DE (occurrence: DE)
  Receive Date: 20211019
  Receipt Date: 20211019
  Transmission Date: 20220304
  Serious: Yes (Hospitalization)
  Sender: FDA-Public Use
  Company Number: None

PATIENT
  Age: 63 Year
  Sex: Female

DRUGS (25)
  1. CARBOPLATIN [Suspect]
     Active Substance: CARBOPLATIN
     Indication: Ovarian cancer
     Dosage: 490 MG (1 TOTAL)
     Route: 042
     Dates: start: 20210309, end: 20210309
  2. CARBOPLATIN [Suspect]
     Active Substance: CARBOPLATIN
     Dosage: 551 MG, (1 TOTAL)
     Route: 042
     Dates: start: 20210423, end: 20210423
  3. CARBOPLATIN [Suspect]
     Active Substance: CARBOPLATIN
     Dosage: 506 MG (1 TOTAL)
     Route: 042
     Dates: start: 20210331, end: 20210331
  4. CARBOPLATIN [Suspect]
     Active Substance: CARBOPLATIN
     Dosage: 551 MG, (1 TOTAL)
     Route: 042
     Dates: start: 20210512, end: 20210512
  5. CARBOPLATIN [Suspect]
     Active Substance: CARBOPLATIN
     Dosage: 517 MG, (1 TOTAL)
     Route: 042
     Dates: start: 20210617, end: 20210617
  6. PACLITAXEL [Suspect]
     Active Substance: PACLITAXEL
     Indication: Ovarian cancer
     Dosage: 301 MG, (1 TOTAL)
     Route: 042
     Dates: start: 20210309, end: 20210309
  7. PACLITAXEL [Suspect]
     Active Substance: PACLITAXEL
     Dosage: 303 MG (1 TOTAL)
     Route: 042
     Dates: start: 20210331, end: 20210331
  8. PACLITAXEL [Suspect]
     Active Substance: PACLITAXEL
     Dosage: 303 MG, (1 TOTAL)
     Route: 042
     Dates: start: 20210423, end: 20210423
  9. PACLITAXEL [Suspect]
     Active Substance: PACLITAXEL
     Dosage: 303 MG, (1 TOTAL)
     Route: 042
     Dates: start: 20210512, end: 20210512
  10. DURVALUMAB [Suspect]
     Active Substance: DURVALUMAB
     Indication: Ovarian cancer
     Dosage: 1120 MG, (1 TOTAL)
     Route: 042
     Dates: start: 20210330, end: 20210330
  11. DURVALUMAB [Suspect]
     Active Substance: DURVALUMAB
     Dosage: 1120 MG, (1 TOTAL)
     Route: 042
     Dates: start: 20210422, end: 20210422
  12. DURVALUMAB [Suspect]
     Active Substance: DURVALUMAB
     Dosage: 1120 MG, (1 TOTAL)
     Route: 042
     Dates: start: 20210511, end: 20210511
  13. APREPITANT [Concomitant]
     Active Substance: APREPITANT
     Indication: Chemotherapy
     Dosage: 125 MG, QD
     Route: 048
     Dates: start: 20210309
  14. BEVACIZUMAB [Concomitant]
     Active Substance: BEVACIZUMAB
     Indication: Ovarian cancer
     Dosage: 1080 MG, (1 TOTAL)
     Route: 065
     Dates: start: 20210330, end: 20210330
  15. BEVACIZUMAB [Concomitant]
     Active Substance: BEVACIZUMAB
     Dosage: 1080 MG, (1 TOTAL)
     Route: 042
     Dates: start: 20210422, end: 20210422
  16. BEVACIZUMAB [Concomitant]
     Active Substance: BEVACIZUMAB
     Dosage: 1080 MG, (1 TOTAL)
     Route: 065
     Dates: start: 20210512, end: 20210512
  17. DIMETHINDENE MALEATE [Concomitant]
     Active Substance: DIMETHINDENE MALEATE
     Indication: Chemotherapy
     Dosage: 4 MG, QD
     Route: 042
     Dates: start: 20210309
  18. DIMETHINDENE [Concomitant]
     Active Substance: DIMETHINDENE
     Indication: Hypersensitivity
     Dosage: 4 MG, QD
     Route: 042
     Dates: start: 20210331, end: 20210331
  19. DEXAMETHASONE [Concomitant]
     Active Substance: DEXAMETHASONE
     Indication: Hypersensitivity
     Dosage: 20 MG, QD
     Route: 042
     Dates: start: 20210309
  20. DEXAMETHASONE [Concomitant]
     Active Substance: DEXAMETHASONE
     Indication: Chemotherapy
     Dosage: 8 MG, QD
     Route: 065
     Dates: start: 20210331, end: 20210331
  21. EFEROX [Concomitant]
     Active Substance: LEVOTHYROXINE SODIUM
     Indication: Thyroid operation
     Dosage: 88 UG, QD
     Route: 048
     Dates: start: 19940101
  22. FAMOTIDINE [Concomitant]
     Active Substance: FAMOTIDINE
     Indication: Chemotherapy
     Dosage: 20 MG, QD
     Route: 048
     Dates: start: 20210309
  23. GRANISETRON [Concomitant]
     Active Substance: GRANISETRON
     Indication: Chemotherapy
     Dosage: 1 MG, QD
     Route: 042
     Dates: start: 20210309
  24. MOVICOL [Concomitant]
     Active Substance: POLYETHYLENE GLYCOL 3350\POTASSIUM CHLORIDE\SODIUM BICARBONATE\SODIUM CHLORIDE
     Indication: Constipation
     Dosage: UNK
     Route: 048
     Dates: start: 20210321
  25. OLAPARIB [Concomitant]
     Active Substance: OLAPARIB
     Indication: Ovarian cancer
     Route: 048

REACTIONS (1)
  - Arthralgia [Recovered/Resolved]

NARRATIVE: CASE EVENT DATE: 20210404
